FAERS Safety Report 17237792 (Version 1)
Quarter: 2020Q1

REPORT INFORMATION
  Report Type: Spontaneous
  Country: FR (occurrence: FR)
  Receive Date: 20200106
  Receipt Date: 20200106
  Transmission Date: 20200409
  Serious: Yes (Hospitalization, Other)
  Sender: FDA-Public Use
  Company Number: FR-SA-2020SA001243

PATIENT
  Age: 19 Year
  Sex: Male

DRUGS (3)
  1. PRILIGY [Interacting]
     Active Substance: DAPOXETINE HYDROCHLORIDE
     Indication: PREMATURE EJACULATION
     Dosage: 7.5 MG, TOTAL
     Route: 048
     Dates: start: 20191109, end: 20191109
  2. LANTUS SOLOSTAR [Suspect]
     Active Substance: INSULIN GLARGINE
     Indication: TYPE 1 DIABETES MELLITUS
     Dosage: 22 IU, QD
     Route: 058
     Dates: start: 2013
  3. HUMALOG MIX75/25 [Interacting]
     Active Substance: INSULIN LISPRO
     Indication: TYPE 1 DIABETES MELLITUS
     Dosage: 28 IU, QD
     Route: 058
     Dates: start: 2013

REACTIONS (3)
  - Seizure [Recovered/Resolved]
  - Drug interaction [Unknown]
  - Hypoglycaemic coma [Recovered/Resolved]

NARRATIVE: CASE EVENT DATE: 20191110
